FAERS Safety Report 9211913 (Version 2)
Quarter: 2013Q3

REPORT INFORMATION
  Report Type: Spontaneous
  Country: US (occurrence: US)
  Receive Date: 20130404
  Receipt Date: 20130708
  Transmission Date: 20140515
  Serious: Yes (Hospitalization)
  Sender: FDA-Public Use
  Company Number: US-AMGEN-USASP2013018805

PATIENT
  Age: 36 Year
  Sex: Female

DRUGS (2)
  1. ENBREL [Suspect]
     Indication: PSORIATIC ARTHROPATHY
     Dosage: 50 MG, QWK
     Dates: start: 20120320
  2. METHOTREXATE [Concomitant]
     Dosage: 5 MG, QWK

REACTIONS (4)
  - Meningitis viral [Recovered/Resolved]
  - Malaise [Unknown]
  - Sinusitis [Recovered/Resolved]
  - Pharyngitis streptococcal [Recovered/Resolved]
